FAERS Safety Report 24465382 (Version 1)
Quarter: 2024Q4

REPORT INFORMATION
  Report Type: Report from Study
  Country: US (occurrence: US)
  Receive Date: 20241018
  Receipt Date: 20241018
  Transmission Date: 20250115
  Serious: No
  Sender: ROCHE
  Company Number: US-ROCHE-3506922

PATIENT
  Age: 65 Year
  Sex: Female
  Weight: 50.8 kg

DRUGS (15)
  1. XOLAIR [Suspect]
     Active Substance: OMALIZUMAB
     Indication: Idiopathic urticaria
     Dosage: INJECT 150MG TOTAL UNDER THE SKIN EACH MONTH; 1 INJECTION IN EACH ARM SO DIVIDED INTO TWO DOSES.
     Route: 030
  2. NITROFURANTOIN MONOHYDRATE MACROCRYSTALS [Suspect]
     Active Substance: NITROFURANTOIN\NITROFURANTOIN MONOHYDRATE
     Indication: Urinary tract infection
     Dosage: 1 TWICE DAILY
     Route: 048
  3. CANNABIS SATIVA SUBSP. INDICA TOP [Suspect]
     Active Substance: CANNABIS SATIVA SUBSP. INDICA TOP
     Indication: Anxiety
     Dosage: USES EVERY EVENING
     Route: 065
  4. CANNABIS SATIVA SUBSP. INDICA TOP [Suspect]
     Active Substance: CANNABIS SATIVA SUBSP. INDICA TOP
     Indication: Pain
  5. PLAQUENIL [Suspect]
     Active Substance: HYDROXYCHLOROQUINE SULFATE
     Indication: Product used for unknown indication
     Route: 065
  6. RESTASIS [Concomitant]
     Active Substance: CYCLOSPORINE
     Dosage: USES IN MORNING AND EVENING
     Route: 047
  7. SYNTHROID [Concomitant]
     Active Substance: LEVOTHYROXINE SODIUM
     Indication: Hypothyroidism
     Route: 065
  8. TRAZODONE [Concomitant]
     Active Substance: TRAZODONE HYDROCHLORIDE
     Indication: Anxiety
     Route: 065
  9. DIAZEPAM [Concomitant]
     Active Substance: DIAZEPAM
     Indication: Anxiety
     Dosage: PATIENT CAN TAKE UP TO 3 PILLS PER NIGHT
  10. DIAZEPAM [Concomitant]
     Active Substance: DIAZEPAM
     Indication: Muscle tightness
  11. VENTOLIN HFA [Concomitant]
     Active Substance: ALBUTEROL SULFATE
     Dosage: PATIENT HARDLY EVER USES IT
     Route: 055
  12. ESTRADIOL;PROGESTERONE [Concomitant]
     Dosage: ESTRADIOL 3%/PROGESTERONE 200; PUTS ON BACK OF LEGS AND UPPER THIGHS?AND CHANGES EVERY OTHER NIGHT
     Route: 061
  13. ADDERALL [Concomitant]
     Active Substance: AMPHETAMINE ASPARTATE\AMPHETAMINE SULFATE\DEXTROAMPHETAMINE SACCHARATE\DEXTROAMPHETAMINE SULFATE
     Indication: Attention deficit hyperactivity disorder
     Dosage: 1/2 OF A 30MG TABLET IN THE MORNING AND IN THE EVENING (TOTAL 30MG?DAILY DOSE)
     Route: 048
  14. LIDOCAINE [Concomitant]
     Active Substance: LIDOCAINE
     Dosage: 1 PATCH ON ELBOW AND 1 PATCH MID-SPINE EVERY NIGHT
     Route: 061
  15. LOSARTAN [Concomitant]
     Active Substance: LOSARTAN
     Dosage: TAKES IN THE MORNING
     Route: 048

REACTIONS (6)
  - Off label use [Unknown]
  - Urinary tract infection [Not Recovered/Not Resolved]
  - Memory impairment [Recovering/Resolving]
  - Abdominal discomfort [Not Recovered/Not Resolved]
  - Feeling abnormal [Not Recovered/Not Resolved]
  - Rheumatoid arthritis [Unknown]

NARRATIVE: CASE EVENT DATE: 20240202
